FAERS Safety Report 5955229-8 (Version None)
Quarter: 2008Q4

REPORT INFORMATION
  Report Type: 
  Country: None (occurrence: None)
  Receive Date: 20081117
  Receipt Date: 20081107
  Transmission Date: 20090506
  Serious: Yes (Hospitalization, Other)
  Sender: FDA-Public Use
  Company Number: IT-BAYER-200830268GPV

PATIENT
  Age: 40 Year
  Sex: Male
  Weight: 59 kg

DRUGS (9)
  1. SORAFENIB [Suspect]
     Indication: RENAL CELL CARCINOMA
     Dosage: TOTAL DAILY DOSE: 800 MG
     Route: 048
     Dates: start: 20080610, end: 20080707
  2. SORAFENIB [Suspect]
     Dosage: TOTAL DAILY DOSE: 1600 MG
     Route: 048
     Dates: start: 20080805, end: 20081017
  3. SORAFENIB [Suspect]
     Dosage: TOTAL DAILY DOSE: 1200 MG
     Route: 048
     Dates: start: 20080708, end: 20080804
  4. SORAFENIB [Suspect]
     Dosage: TOTAL DAILY DOSE: 1200 MG
     Route: 048
     Dates: start: 20081018, end: 20081104
  5. LORAZEPAM [Concomitant]
     Indication: INSOMNIA
     Route: 048
     Dates: start: 20080624, end: 20080630
  6. UREA 25% [Concomitant]
     Indication: PALMAR-PLANTAR ERYTHRODYSAESTHESIA SYNDROME
     Route: 061
     Dates: start: 20080610, end: 20080707
  7. IMODIUM [Concomitant]
     Indication: DIARRHOEA
     Route: 048
     Dates: start: 20080819
  8. OMEPRAZOLE [Concomitant]
     Indication: VOMITING
     Route: 042
     Dates: start: 20081104, end: 20081104
  9. PLASIL [Concomitant]
     Indication: VOMITING
     Route: 042
     Dates: start: 20081104, end: 20081104

REACTIONS (2)
  - DIARRHOEA [None]
  - HYPOTENSION [None]
